FAERS Safety Report 7638885-8 (Version None)
Quarter: 2011Q3

REPORT INFORMATION
  Report Type: 
  Country: None (occurrence: None)
  Receive Date: 20110727
  Receipt Date: 20110720
  Transmission Date: 20111222
  Serious: Yes (Other)
  Sender: FDA-Public Use
  Company Number: US-KINGPHARMUSA00001-K201100847

PATIENT
  Sex: Female
  Weight: 79.365 kg

DRUGS (2)
  1. SKELAXIN [Suspect]
     Dosage: 800 MG, CUT INTO FOURTHS, UNK
  2. SKELAXIN [Suspect]
     Dosage: 400 MG, BID
     Route: 048
     Dates: start: 20010101

REACTIONS (10)
  - CONJUNCTIVITIS [None]
  - ARRHYTHMIA [None]
  - ADVERSE EVENT [None]
  - BLOOD PRESSURE INCREASED [None]
  - CHILLS [None]
  - STEVENS-JOHNSON SYNDROME [None]
  - PALPITATIONS [None]
  - CHOKING SENSATION [None]
  - NAUSEA [None]
  - PYREXIA [None]
